FAERS Safety Report 8572282-6 (Version None)
Quarter: 2012Q3

REPORT INFORMATION
  Report Type: 
  Country: None (occurrence: None)
  Receive Date: 20120806
  Receipt Date: 20120720
  Transmission Date: 20120928
  Serious: Yes (Other)
  Sender: FDA-Public Use
  Company Number: GA-PFIZER INC-2012188298

PATIENT
  Age: 30 Year
  Sex: Female

DRUGS (2)
  1. IBRUPROFEN [Concomitant]
     Indication: SINUSITIS
     Dosage: UNK
  2. CEFPODOXIME PROXETIL [Suspect]
     Indication: SINUSITIS
     Dosage: 100 MG, DAILY
     Route: 048
     Dates: start: 20120212, end: 20120214

REACTIONS (1)
  - ANGIOEDEMA [None]
